FAERS Safety Report 8592795-0 (Version None)
Quarter: 2012Q3

REPORT INFORMATION
  Report Type: 
  Country: None (occurrence: None)
  Receive Date: 20120814
  Receipt Date: 20120814
  Transmission Date: 20120928
  Serious: Yes (Other)
  Sender: FDA-Public Use
  Company Number: KR-ROCHE-1094176

PATIENT
  Sex: Female
  Weight: 57 kg

DRUGS (4)
  1. TRASTUZUMAB [Suspect]
     Indication: BREAST CANCER
     Route: 042
     Dates: start: 20120227
  2. PACLITAXEL [Concomitant]
     Indication: BREAST CANCER
     Route: 042
     Dates: start: 20120227, end: 20120430
  3. METFORMIN HCL [Concomitant]
     Indication: DIABETES MELLITUS
     Route: 048
     Dates: start: 20111113
  4. INSULIN [Concomitant]
     Indication: DIABETES MELLITUS
     Route: 058
     Dates: start: 20111230

REACTIONS (2)
  - SKIN DISCOLOURATION [None]
  - NEUROPATHY PERIPHERAL [None]
